FAERS Safety Report 10027059 (Version 2)
Quarter: 2014Q2

REPORT INFORMATION
  Report Type: Spontaneous
  Country: GB (occurrence: GB)
  Receive Date: 20140321
  Receipt Date: 20140603
  Transmission Date: 20141212
  Serious: Yes (Other)
  Sender: FDA-Public Use
  Company Number: GB-BRISTOL-MYERS SQUIBB COMPANY-20509204

PATIENT
  Age: 45 Year
  Sex: Female

DRUGS (8)
  1. BYDUREON [Suspect]
     Indication: TYPE 2 DIABETES MELLITUS
     Dosage: LATEST DOSE: MID FEB14
     Route: 058
     Dates: start: 20140127, end: 20140216
  2. GLICLAZIDE [Concomitant]
     Dosage: TAB,1 WITH BREAKFAST AND 1 WITH EVENING MEALS
  3. IPRATROPIUM BROMIDE [Concomitant]
     Dosage: 1PUFF,ONCE A DAY
     Route: 055
  4. METFORMIN HCL TABS 500MG [Concomitant]
  5. LEVOTHYROXINE SODIUM [Concomitant]
     Dosage: 1 IN THE MORNING,DOSE VALUE:50MCG?TAB
  6. LISINOPRIL [Concomitant]
     Dosage: TAB
  7. SALBUTAMOL [Concomitant]
     Dosage: 2 PUFFS AS NEEDED
     Route: 055
  8. OMEPRAZOLE [Concomitant]
     Dosage: GASTRO-RESISTANT CAP

REACTIONS (7)
  - Nausea [Unknown]
  - Vomiting [Unknown]
  - Abdominal distension [Unknown]
  - Constipation [Unknown]
  - Impaired gastric emptying [Unknown]
  - Faecaloma [Unknown]
  - Abdominal pain [Unknown]
